FAERS Safety Report 12602938 (Version 8)
Quarter: 2017Q1

REPORT INFORMATION
  Report Type: Spontaneous
  Country: US (occurrence: US)
  Receive Date: 20160728
  Receipt Date: 20170224
  Transmission Date: 20170428
  Serious: Yes (Congenital Anomaly, Other)
  Sender: FDA-Public Use
  Company Number: PHHY2015US132870

PATIENT
  Sex: Female

DRUGS (2)
  1. ZOFRAN [Suspect]
     Active Substance: ONDANSETRON HYDROCHLORIDE
     Indication: FOETAL EXPOSURE DURING PREGNANCY
     Route: 064
  2. ZOFRAN [Suspect]
     Active Substance: ONDANSETRON HYDROCHLORIDE
     Indication: FOETAL EXPOSURE DURING PREGNANCY
     Dosage: MOTHER^S DOSE: 8 MG, TID
     Route: 064

REACTIONS (30)
  - Heart disease congenital [Unknown]
  - Bronchopulmonary dysplasia [Unknown]
  - Asthma [Unknown]
  - Neonatal respiratory distress syndrome [Recovering/Resolving]
  - Otitis media acute [Unknown]
  - Ear pain [Unknown]
  - Dyspnoea [Unknown]
  - Cardiac murmur [Unknown]
  - Injury [Unknown]
  - Supraventricular extrasystoles [Unknown]
  - Wheezing [Unknown]
  - Decreased appetite [Unknown]
  - Left-to-right cardiac shunt [Unknown]
  - Conjunctivitis [Unknown]
  - Respiratory failure [Recovering/Resolving]
  - Arrhythmia [Unknown]
  - Atrial septal defect [Unknown]
  - Foetal exposure during pregnancy [Unknown]
  - Upper respiratory tract infection [Unknown]
  - Hypoglycaemia neonatal [Unknown]
  - Jaundice neonatal [Unknown]
  - Premature baby [Unknown]
  - Bronchiolitis [Unknown]
  - Infantile apnoea [Unknown]
  - Borderline personality disorder [Unknown]
  - Sepsis [Unknown]
  - Cerebral ventricle dilatation [Unknown]
  - Bradycardia neonatal [Unknown]
  - Anaemia [Unknown]
  - Constipation [Unknown]
